FAERS Safety Report 16296520 (Version 2)
Quarter: 2019Q2

REPORT INFORMATION
  Report Type: Report from Study
  Country: US (occurrence: US)
  Receive Date: 20190510
  Receipt Date: 20190527
  Transmission Date: 20190711
  Serious: No
  Sender: FDA-Public Use
  Company Number: US-ROCHE-2311416

PATIENT
  Age: 68 Year
  Sex: Female
  Weight: 77.1 kg

DRUGS (25)
  1. ONDANSETRON HCL [Concomitant]
     Active Substance: ONDANSETRON HYDROCHLORIDE
     Indication: NAUSEA
     Route: 048
     Dates: start: 20171003
  2. TALC [Concomitant]
     Active Substance: TALC
     Indication: ANORECTAL DISCOMFORT
     Dosage: 1 OTHER
     Route: 061
     Dates: start: 20171028
  3. FOSAPREPITANT [Concomitant]
     Active Substance: FOSAPREPITANT
     Indication: PREMEDICATION
     Route: 042
     Dates: start: 20171012
  4. PROCHLORPERAZINE MALEATE. [Concomitant]
     Active Substance: PROCHLORPERAZINE MALEATE
     Indication: NAUSEA
     Route: 048
     Dates: start: 20171003
  5. OLANZAPINE. [Concomitant]
     Active Substance: OLANZAPINE
     Indication: NAUSEA
     Route: 048
     Dates: start: 20171124
  6. MINERAL OIL. [Concomitant]
     Active Substance: MINERAL OIL
     Indication: ANORECTAL DISCOMFORT
     Dosage: 1 OTHER
     Route: 061
     Dates: start: 20171028
  7. DEXAMETHASONE. [Concomitant]
     Active Substance: DEXAMETHASONE
     Route: 048
     Dates: start: 20171012
  8. SODIUM CHLORIDE. [Concomitant]
     Active Substance: SODIUM CHLORIDE
     Indication: FLUSHING
     Dosage: 10  ML (MILLILITER; CM3)
     Route: 042
     Dates: start: 20171012
  9. DEXAMETHASONE. [Concomitant]
     Active Substance: DEXAMETHASONE
     Indication: PREMEDICATION
     Route: 042
     Dates: start: 20171012
  10. HEPARIN [Concomitant]
     Active Substance: HEPARIN SODIUM
     Indication: FLUSHING
     Dosage: 500 UNIT
     Route: 042
     Dates: start: 20171012
  11. ACETAMINOPHEN. [Concomitant]
     Active Substance: ACETAMINOPHEN
     Indication: PAIN
     Route: 048
     Dates: start: 20170912
  12. LIDOCAINE/PRILOCAINE [Concomitant]
     Active Substance: LIDOCAINE\PRILOCAINE
     Route: 061
     Dates: start: 20171003
  13. CISPLATIN. [Suspect]
     Active Substance: CISPLATIN
     Indication: TRANSITIONAL CELL CARCINOMA METASTATIC
     Dosage: ON 24/NOV/2017, PATIENT RECEIVED MOST RECENT DOSE 132 MG PRIOR TO AE.
     Route: 042
     Dates: start: 20171012
  14. SODIUM CHLORIDE. [Concomitant]
     Active Substance: SODIUM CHLORIDE
     Indication: DEHYDRATION
     Dosage: 1000 ML (MILLILITER; CM3)
     Route: 042
     Dates: start: 20171012
  15. NYSTATIN. [Concomitant]
     Active Substance: NYSTATIN
     Indication: ANORECTAL DISCOMFORT
     Dosage: 1 OTHER
     Route: 061
     Dates: start: 20171028
  16. ONDANSETRON [Concomitant]
     Active Substance: ONDANSETRON
     Indication: PREMEDICATION
     Route: 042
     Dates: start: 20171012
  17. ONDANSETRON [Concomitant]
     Active Substance: ONDANSETRON
     Route: 048
     Dates: start: 20171012
  18. LOTRIMIN [Concomitant]
     Active Substance: CLOTRIMAZOLE
     Indication: TINEA INFECTION
     Dosage: 1 OTHER
     Route: 061
     Dates: start: 20190226
  19. ATEZOLIZUMAB. [Suspect]
     Active Substance: ATEZOLIZUMAB
     Indication: TRANSITIONAL CELL CARCINOMA METASTATIC
     Dosage: ON 08/APR/2019, SHE RECEIVED MOST RECENT DOSE PRIOR TO AE.
     Route: 041
     Dates: start: 20171012
  20. CARBOPLATIN. [Suspect]
     Active Substance: CARBOPLATIN
     Indication: TRANSITIONAL CELL CARCINOMA METASTATIC
     Dosage: ON 25/JAN/2018, PATIENT RECEIVED MOST RECENT DOSE 492.3 MG PRIOR TO AE.?4.5 MILLIGRAM PER MILLILITER
     Route: 042
     Dates: start: 20171214
  21. OTHER DERMATOLOGICALS [Concomitant]
     Active Substance: UNSPECIFIED INGREDIENT
     Indication: ANORECTAL DISCOMFORT
     Dosage: 1 OTHER
     Route: 061
     Dates: start: 20171028
  22. VITAMIN B COMPLEX [Concomitant]
     Active Substance: CYANOCOBALAMIN\DEXPANTHENOL\NIACINAMIDE\PYRIDOXINE HYDROCHLORIDE\RIBOFLAVIN 5^-PHOSPHATE SODIUM\THIAMINE HYDROCHLORIDE\VITAMIN B COMPLEX
     Indication: NEUROPATHY PERIPHERAL
     Dosage: 1 TABLET
     Route: 048
     Dates: start: 20180802
  23. METOPROLOL. [Concomitant]
     Active Substance: METOPROLOL
     Indication: HYPERTENSION
     Route: 048
     Dates: start: 20170109, end: 20190424
  24. GEMCITABINE [Suspect]
     Active Substance: GEMCITABINE\GEMCITABINE HYDROCHLORIDE
     Indication: TRANSITIONAL CELL CARCINOMA METASTATIC
     Dosage: ON 01/FEB/2018, PATIENT RECEIVED MOST RECENT DOSE 1000 MG/M2 PRIOR TO AE.?DAY 1 AND DAY 8 OF EACH 21
     Route: 042
     Dates: start: 20171012
  25. GLIPIZIDE. [Concomitant]
     Active Substance: GLIPIZIDE
     Indication: TYPE 2 DIABETES MELLITUS
     Route: 048
     Dates: start: 20170405

REACTIONS (1)
  - Hypertension [Not Recovered/Not Resolved]

NARRATIVE: CASE EVENT DATE: 20190424
